FAERS Safety Report 9171694 (Version 1)
Quarter: 2013Q1

REPORT INFORMATION
  Report Type: Spontaneous
  Country: US (occurrence: None)
  Receive Date: 20130313
  Receipt Date: 20130313
  Transmission Date: 20140127
  Serious: Yes (Other)
  Sender: FDA-Public Use
  Company Number: 1122106

PATIENT
  Age: 47 Year
  Sex: Female

DRUGS (2)
  1. CLEAR EYES COOLING ITCHY EYE RELIEF [Suspect]
     Indication: CONJUNCTIVITIS
     Dosage: INSTILLED INTO EYE
     Dates: start: 20130218
  2. CLEAR EYES COOLING ITCHY EYE RELIEF [Suspect]
     Indication: EYE OEDEMA
     Dosage: INSTILLED INTO EYE
     Dates: start: 20130218

REACTIONS (2)
  - Exposure to toxic agent [None]
  - Eye disorder [None]
